FAERS Safety Report 10065683 (Version 1)
Quarter: 2014Q1

REPORT INFORMATION
  Report Type: Spontaneous
  Country: US (occurrence: None)
  Receive Date: 20140328
  Receipt Date: 20140328
  Transmission Date: 20141002
  Serious: No
  Sender: FDA-Public Use
  Company Number: 1000053428

PATIENT
  Age: 82 Year
  Sex: Female

DRUGS (11)
  1. LINZESS [Suspect]
     Indication: IRRITABLE BOWEL SYNDROME
     Dosage: 290 MCG (290 MCG, 1 IN 1 D), ORAL
     Route: 048
     Dates: start: 20140201
  2. BENEFIBR (WHEAT DEXTRIN) WHEAT DEXTRIN) [Concomitant]
  3. LOSARTAN POTASSIUM (LOSARTAN POTASSIUM) (LOSARTAN POTASSIUM) ? [Concomitant]
  4. AMLODIPINE (AMLODIPINE) (AMLODIPINE) [Concomitant]
  5. ALPRAZOLAM (ALPRAZOLAM) (ALPRAZOLAM) [Concomitant]
  6. SUPPOSITORY (NOS) SUPPOSITORY (NOS)) (SUPPOSITORY (NOS)) [Concomitant]
  7. HYDROCORTISONE (HYDROCORTISONE) (CREAM) (HYDROCORTISONE)? [Concomitant]
  8. LIDOCAINE (LIDOCAINE) (LIDOCAINE) [Concomitant]
  9. ASPIRIN (ACETYLSALICYLIC ACID) (ACETYLSALICYLIC ACID0 [Concomitant]
  10. EYE DROPS (NOS) (EYE DROPS (NOS)) (EYE DROPS NOS)) [Concomitant]
  11. MVI (VITAMINS NOS) (VITAMINS NOS) [Concomitant]

REACTIONS (4)
  - Diarrhoea [None]
  - Flatulence [None]
  - Abdominal pain [None]
  - Drug ineffective [None]
